FAERS Safety Report 10930320 (Version 3)
Quarter: 2015Q2

REPORT INFORMATION
  Report Type: Spontaneous
  Country: US (occurrence: US)
  Receive Date: 20150319
  Receipt Date: 20150611
  Transmission Date: 20150821
  Serious: No
  Sender: FDA-Public Use
  Company Number: US-PFIZER INC-2015093597

PATIENT
  Age: 70 Year
  Sex: Female

DRUGS (3)
  1. AROMASIN [Suspect]
     Active Substance: EXEMESTANE
     Indication: BREAST CANCER
     Dosage: 25 MG, DAILY
     Route: 048
     Dates: start: 201210
  2. AROMASIN [Suspect]
     Active Substance: EXEMESTANE
     Dosage: 20 MG, UNK
     Route: 048
     Dates: start: 2013
  3. AROMASIN [Suspect]
     Active Substance: EXEMESTANE
     Dosage: 25 MG, DAILY
     Route: 048

REACTIONS (2)
  - Malaise [Unknown]
  - Oropharyngeal pain [Unknown]
